FAERS Safety Report 7490526-9 (Version None)
Quarter: 2011Q2

REPORT INFORMATION
  Report Type: 
  Country: None (occurrence: None)
  Receive Date: 20110517
  Receipt Date: 20110517
  Transmission Date: 20111010
  Serious: Yes (Hospitalization)
  Sender: FDA-Public Use
  Company Number: None

PATIENT
  Age: 64 Year
  Sex: Female

DRUGS (1)
  1. NORDITROPIN [Suspect]
     Dosage: 1.6 MG QD SC
     Route: 058

REACTIONS (1)
  - RENAL PAPILLARY NECROSIS [None]
